FAERS Safety Report 7272465-1 (Version None)
Quarter: 2011Q1

REPORT INFORMATION
  Report Type: 
  Country: None (occurrence: None)
  Receive Date: 20110203
  Receipt Date: 20110127
  Transmission Date: 20110831
  Serious: Yes (Hospitalization)
  Sender: FDA-Public Use
  Company Number: US-NAPPMUNDI-USA-2011-0063104

PATIENT
  Sex: Female

DRUGS (1)
  1. OXYCONTIN [Suspect]
     Indication: PAIN
     Dosage: 80 MG, Q8H
     Dates: start: 20101112

REACTIONS (4)
  - HOSPITALISATION [None]
  - BACTERIAL INFECTION [None]
  - PRE-EXISTING DISEASE [None]
  - THROMBOSIS [None]
